FAERS Safety Report 8937141 (Version 3)
Quarter: 2013Q1

REPORT INFORMATION
  Report Type: Spontaneous
  Country: JP (occurrence: None)
  Receive Date: 20121121
  Receipt Date: 20130307
  Transmission Date: 20140127
  Serious: No
  Sender: FDA-Public Use
  Company Number: TPA2012A07448

PATIENT
  Age: 66 Year
  Sex: Male

DRUGS (4)
  1. FEBURIC (FEBUXOSTAT) [Suspect]
     Indication: HYPERURICAEMIA
     Route: 048
     Dates: start: 20120515, end: 20120611
  2. LIVALO (PITVASTATIN CALCIUM) [Concomitant]
  3. DIOVAN (VALSARTAN) [Concomitant]
  4. BAYASPIRIN (ACETYLSALICYLIC ACID) [Concomitant]

REACTIONS (8)
  - Diplopia [None]
  - Eye pain [None]
  - Conjunctivitis [None]
  - Lacrimation increased [None]
  - Arteriovenous fistula [None]
  - Drug hypersensitivity [None]
  - Dural fistula [None]
  - Condition aggravated [None]
